FAERS Safety Report 21962821 (Version 3)
Quarter: 2024Q1

REPORT INFORMATION
  Report Type: Spontaneous
  Country: IT (occurrence: IT)
  Receive Date: 20230207
  Receipt Date: 20240229
  Transmission Date: 20240409
  Serious: Yes (Hospitalization)
  Sender: FDA-Public Use
  Company Number: IT-ROCHE-3254421

PATIENT
  Age: 79 Year
  Sex: Female
  Weight: 70 kg

DRUGS (26)
  1. TAXOL [Suspect]
     Active Substance: PACLITAXEL
     Indication: HER2 positive breast cancer
     Dosage: MOST RECENT DOSE PRIOR TO AE 06/SEP/2019
     Route: 042
     Dates: start: 20190509
  2. FEMARA [Suspect]
     Active Substance: LETROZOLE
     Indication: HER2 positive breast cancer
     Dosage: MOST RECENT DOSE PRIOR TO AE 02/MAR/2020
     Route: 048
     Dates: start: 20191030
  3. XELODA [Suspect]
     Active Substance: CAPECITABINE
     Indication: HER2 positive breast cancer
     Dosage: 2000 MG ONCE IN 2 WEEKS, MOST RECENT DOSE PRIOR TO EVENT:1/MAR/2021
     Route: 048
     Dates: start: 20200702, end: 20200723
  4. XELODA [Suspect]
     Active Substance: CAPECITABINE
     Dosage: 2000 MG DAILY
     Route: 048
     Dates: start: 20210301, end: 20210729
  5. XELODA [Suspect]
     Active Substance: CAPECITABINE
     Dosage: 3000 MG/KG DAILY
     Route: 048
     Dates: start: 20200723, end: 20200810
  6. XELODA [Suspect]
     Active Substance: CAPECITABINE
     Dosage: 3000 MG/KG DAILY
     Route: 048
     Dates: start: 20200911, end: 20210301
  7. HERCEPTIN [Suspect]
     Active Substance: TRASTUZUMAB
     Indication: HER2 positive breast cancer
     Dosage: 6 MG/KG ONCE IN 3 WEEKS MOST RECENT DOSE PRIOR TO AE 2/JUL/2020
     Route: 042
     Dates: start: 20190531, end: 20200214
  8. HERCEPTIN [Suspect]
     Active Substance: TRASTUZUMAB
     Dosage: 6 MG/KG, ONCE IN 3 WEEKS
     Route: 042
     Dates: start: 20200702, end: 20210719
  9. KADCYLA [Suspect]
     Active Substance: ADO-TRASTUZUMAB EMTANSINE
     Indication: HER2 positive breast cancer
     Dosage: RECENT DOSE PRIOR TO AE 31/MAR/2020
     Route: 042
     Dates: start: 20200310
  10. FAM-TRASTUZUMAB DERUXTECAN-NXKI [Suspect]
     Active Substance: FAM-TRASTUZUMAB DERUXTECAN-NXKI
     Indication: HER2 positive breast cancer
     Dosage: 20 MG/ML ONCE IN 4 WEEKS
     Route: 048
     Dates: start: 20210819, end: 20220929
  11. PERJETA [Suspect]
     Active Substance: PERTUZUMAB
     Indication: HER2 positive breast cancer
     Dosage: 420 MG ONCE IN 3 WEEKS MOST RECENT DOSE PRIOR TO AE 14/FEB/2020
     Route: 042
     Dates: start: 20190531
  12. EXEMESTANE [Suspect]
     Active Substance: EXEMESTANE
     Indication: Product used for unknown indication
     Dosage: UNK
     Route: 048
     Dates: start: 20200512, end: 20200702
  13. ONTRUZANT [Suspect]
     Active Substance: TRASTUZUMAB-DTTB
     Indication: Product used for unknown indication
     Dosage: 6 MILLIGRAM/KILOGRAM, Q3W
     Route: 042
     Dates: start: 20200512, end: 20210729
  14. LEVOSULPIRIDE [Suspect]
     Active Substance: LEVOSULPIRIDE
     Dosage: UNK
     Route: 065
     Dates: start: 20200531
  15. LEVOTHYROXINE SODIUM [Concomitant]
     Active Substance: LEVOTHYROXINE SODIUM
     Dosage: ONGOING
     Route: 065
  16. PREGABALIN [Concomitant]
     Active Substance: PREGABALIN
     Dosage: ONGOING
     Route: 065
     Dates: start: 20210119
  17. NORMAST [Concomitant]
     Dosage: ONGOING
     Route: 065
     Dates: start: 20210119
  18. LEVACECARNINE HYDROCHLORIDE [Concomitant]
     Active Substance: LEVACECARNINE HYDROCHLORIDE
     Dosage: ONGOING
     Route: 065
     Dates: start: 20210119
  19. CITALOPRAM [Concomitant]
     Active Substance: CITALOPRAM HYDROBROMIDE
     Dosage: ONGOING
     Route: 065
     Dates: start: 20200715
  20. LOPERAMIDE HYDROCHLORIDE [Concomitant]
     Active Substance: LOPERAMIDE HYDROCHLORIDE
     Dosage: ONGOING
     Route: 065
  21. ACETAMINOPHEN\OXYCODONE HYDROCHLORIDE [Concomitant]
     Active Substance: ACETAMINOPHEN\OXYCODONE HYDROCHLORIDE
     Dosage: ONGOING
     Route: 065
     Dates: start: 20201022
  22. LACTULOSE [Concomitant]
     Active Substance: LACTULOSE
     Dosage: UNK
     Route: 065
  23. TAZAROTENE [Concomitant]
     Active Substance: TAZAROTENE
     Dosage: UNK
     Route: 065
  24. NEURONTIN [Concomitant]
     Active Substance: GABAPENTIN
     Dosage: UNK
     Route: 065
  25. MEDROL [Concomitant]
     Active Substance: METHYLPREDNISOLONE
     Dosage: UNK
     Route: 065
  26. DIETARY SUPPLEMENT\HERBALS\MILK THISTLE [Concomitant]
     Active Substance: MILK THISTLE
     Dosage: UNK
     Route: 065

REACTIONS (1)
  - Anal haemorrhage [Recovered/Resolved]

NARRATIVE: CASE EVENT DATE: 20221028
